FAERS Safety Report 25488769 (Version 1)
Quarter: 2025Q2

REPORT INFORMATION
  Report Type: Spontaneous
  Country: IT (occurrence: IT)
  Receive Date: 20250627
  Receipt Date: 20250627
  Transmission Date: 20250716
  Serious: Yes (Hospitalization, Other)
  Sender: APELLIS PHARMACEUTICALS
  Company Number: US-BIOVITRUM-2025-US-007881

PATIENT

DRUGS (1)
  1. PEGCETACOPLAN [Suspect]
     Active Substance: PEGCETACOPLAN
     Indication: Complement factor C3

REACTIONS (3)
  - Capillary leak syndrome [Not Recovered/Not Resolved]
  - Off label use [Unknown]
  - Cardiopulmonary failure [Recovering/Resolving]
